FAERS Safety Report 9707798 (Version 1)
Quarter: 2013Q4

REPORT INFORMATION
  Report Type: Spontaneous
  Country: JP (occurrence: JP)
  Receive Date: 20131125
  Receipt Date: 20131125
  Transmission Date: 20140711
  Serious: Yes (Hospitalization)
  Sender: FDA-Public Use
  Company Number: JP-ASTELLAS-2013JP012949

PATIENT
  Sex: Male

DRUGS (3)
  1. HARNAL [Suspect]
     Dosage: 0.2 MG, UID/QD
     Route: 048
     Dates: start: 20131107
  2. VESICARE [Suspect]
     Dosage: 5 MG, UID/QD
     Route: 048
     Dates: start: 20131107
  3. CEFAMEZIN [Suspect]
     Dosage: UNK
     Route: 065
     Dates: start: 20131114

REACTIONS (4)
  - Road traffic accident [Unknown]
  - Fracture [Unknown]
  - Flushing [Unknown]
  - Flushing [Unknown]
